FAERS Safety Report 7459969-3 (Version None)
Quarter: 2011Q2

REPORT INFORMATION
  Report Type: 
  Country: None (occurrence: None)
  Receive Date: 20110418
  Receipt Date: 20110407
  Transmission Date: 20111010
  Serious: Yes (Hospitalization)
  Sender: FDA-Public Use
  Company Number: 2011027672

PATIENT
  Age: 46 Year
  Sex: Female

DRUGS (2)
  1. VIVAGLOBIN [Suspect]
     Indication: POLYNEUROPATHY
     Dosage: 11.2 G 2X/WEEK, SUBCUTANEOUS
     Route: 058
     Dates: start: 20101029
  2. VIVAGLOBIN [Suspect]
     Indication: POLYNEUROPATHY
     Dosage: 11.2 G 2X/WEEK, SUBCUTANEOUS
     Route: 058
     Dates: start: 20100929, end: 20101029

REACTIONS (3)
  - MYOCARDITIS [None]
  - ELECTROCARDIOGRAM ST SEGMENT DEPRESSION [None]
  - ELECTROCARDIOGRAM Q WAVES [None]
